FAERS Safety Report 6381677-0 (Version None)
Quarter: 2009Q3

REPORT INFORMATION
  Report Type: 
  Country: None (occurrence: None)
  Receive Date: 20090930
  Receipt Date: 20090917
  Transmission Date: 20100115
  Serious: Yes (Hospitalization)
  Sender: FDA-Public Use
  Company Number: PHHY2009VE40009

PATIENT
  Sex: Male

DRUGS (1)
  1. LEPONEX [Suspect]
     Dosage: 400 MG/DAY
     Dates: start: 20020611

REACTIONS (2)
  - GUILLAIN-BARRE SYNDROME [None]
  - SCHIZOPHRENIA [None]
